FAERS Safety Report 4647167-8 (Version None)
Quarter: 2005Q2

REPORT INFORMATION
  Report Type: 
  Country: None (occurrence: None)
  Receive Date: 20050425
  Receipt Date: 20050418
  Transmission Date: 20051028
  Serious: Yes (Hospitalization)
  Sender: FDA-Public Use
  Company Number: OMPQ-PR-0504S-0677

PATIENT
  Age: 50 Year
  Sex: Female

DRUGS (7)
  1. OMNIPAQUE 140 [Suspect]
     Indication: ABDOMINAL ABSCESS
     Dosage: 50 ML, SINGLE DOSE, EXTRAVASATION
     Dates: start: 20050204, end: 20050204
  2. ZANTAC [Concomitant]
  3. ASCORBIC ACID (VITAMIN C) [Concomitant]
  4. ESCITALOPRAM OXALATE (LEXAPRO) [Concomitant]
  5. PHENYTOIN SODIUM [Concomitant]
  6. BACLOFEN [Concomitant]
  7. NEURONTIN [Concomitant]

REACTIONS (3)
  - COMPARTMENT SYNDROME [None]
  - CYANOSIS [None]
  - PAIN IN EXTREMITY [None]
